FAERS Safety Report 7319740-X (Version None)
Quarter: 2011Q1

REPORT INFORMATION
  Report Type: 
  Country: None (occurrence: None)
  Receive Date: 20110228
  Receipt Date: 20100901
  Transmission Date: 20110831
  Serious: No
  Sender: FDA-Public Use
  Company Number: A0878929A

PATIENT
  Age: 55 Year
  Sex: Female

DRUGS (5)
  1. BUSPIRONE [Concomitant]
  2. TRAZODONE HCL [Suspect]
     Indication: SLEEP DISORDER
     Dates: start: 20080602
  3. LAMICTAL [Suspect]
     Indication: BIPOLAR DISORDER
     Dosage: 400MG TWICE PER DAY
     Route: 048
     Dates: start: 20040201
  4. WELLBUTRIN [Concomitant]
  5. HORMONE PATCH [Concomitant]

REACTIONS (1)
  - COUGH [None]
